FAERS Safety Report 23443886 (Version 1)
Quarter: 2024Q1

REPORT INFORMATION
  Report Type: Spontaneous
  Country: CN (occurrence: CN)
  Receive Date: 20240125
  Receipt Date: 20240125
  Transmission Date: 20240410
  Serious: Yes (Other)
  Sender: FDA-Public Use
  Company Number: CN-PFIZER INC-PV202400009768

PATIENT
  Age: 4 Year
  Sex: Male

DRUGS (1)
  1. ZITHROMAX [Suspect]
     Active Substance: AZITHROMYCIN DIHYDRATE
     Dosage: 1.5 DF, 1X/DAY
     Route: 048
     Dates: start: 20231204, end: 20231207

REACTIONS (3)
  - Electrocardiogram QT prolonged [Recovering/Resolving]
  - Bundle branch block [Recovering/Resolving]
  - Off label use [Unknown]

NARRATIVE: CASE EVENT DATE: 20231204
